FAERS Safety Report 4664001-0 (Version None)
Quarter: 2005Q2

REPORT INFORMATION
  Report Type: 
  Country: None (occurrence: None)
  Receive Date: 20050516
  Receipt Date: 20050516
  Transmission Date: 20051028
  Serious: Yes (Life-Threatening)
  Sender: FDA-Public Use
  Company Number: None

PATIENT
  Age: 46 Year
  Sex: Female
  Weight: 119.7496 kg

DRUGS (6)
  1. ABILIFY [Suspect]
     Indication: BIPOLAR DISORDER
     Dosage: 10 MG
     Dates: start: 20050412, end: 20050418
  2. ADDERALL 10 [Suspect]
     Indication: ATTENTION DEFICIT/HYPERACTIVITY DISORDER
     Dosage: 10 MG
     Dates: start: 20041210
  3. TRILEPTAL [Concomitant]
  4. SOMA [Concomitant]
  5. VICODIN [Concomitant]
  6. MOBIC [Concomitant]

REACTIONS (1)
  - CEREBROVASCULAR DISORDER [None]
